FAERS Safety Report 12356190 (Version 1)
Quarter: 2016Q2

REPORT INFORMATION
  Report Type: Spontaneous
  Country: IT (occurrence: IT)
  Receive Date: 20160511
  Receipt Date: 20160511
  Transmission Date: 20160815
  Serious: Yes (Other)
  Sender: FDA-Public Use
  Company Number: IT-ELI_LILLY_AND_COMPANY-IT201605000182

PATIENT
  Age: 55 Year
  Sex: Female

DRUGS (7)
  1. OMEPRAZOLE. [Concomitant]
     Active Substance: OMEPRAZOLE
     Dosage: 20 MG, UNKNOWN
  2. SODIUM CARBONATE [Concomitant]
     Active Substance: SODIUM CARBONATE
     Dosage: 4 G, UNKNOWN
  3. FOLINA                             /00024201/ [Concomitant]
     Active Substance: FOLIC ACID
     Dosage: 1 DF, UNKNOWN
  4. HUMALOG [Suspect]
     Active Substance: INSULIN LISPRO
     Indication: DIABETES MELLITUS
     Dosage: 10 DF, QD
     Route: 058
     Dates: start: 20160308, end: 20160413
  5. LASIX [Concomitant]
     Active Substance: FUROSEMIDE
     Dosage: 500 MG, UNKNOWN
  6. NORVASC [Concomitant]
     Active Substance: AMLODIPINE BESYLATE
     Dosage: 10 MG, UNKNOWN
  7. BECOSYM [Concomitant]
     Indication: GASTROINTESTINAL DISORDER
     Dosage: 1 DF, UNKNOWN

REACTIONS (2)
  - Hypoglycaemia [Recovered/Resolved]
  - Sopor [Recovered/Resolved]

NARRATIVE: CASE EVENT DATE: 20160409
